FAERS Safety Report 4986253-X (Version None)
Quarter: 2006Q2

REPORT INFORMATION
  Report Type: 
  Country: None (occurrence: None)
  Receive Date: 20060428
  Receipt Date: 20060425
  Transmission Date: 20061013
  Serious: Yes (Hospitalization)
  Sender: FDA-Public Use
  Company Number: GB-GLAXOSMITHKLINE-B0421179A

PATIENT
  Sex: Female

DRUGS (1)
  1. PIRITON ALLERGY TABLETS [Suspect]
     Route: 048

REACTIONS (2)
  - OVERDOSE [None]
  - SOMNOLENCE [None]
